FAERS Safety Report 7065409-9 (Version None)
Quarter: 2010Q4

REPORT INFORMATION
  Report Type: 
  Country: None (occurrence: None)
  Receive Date: 20101027
  Receipt Date: 20101013
  Transmission Date: 20110411
  Serious: Yes (Death)
  Sender: FDA-Public Use
  Company Number: BR-GENENTECH-308221

PATIENT
  Sex: Female

DRUGS (2)
  1. RITUXIMAB [Suspect]
     Indication: RHEUMATOID ARTHRITIS
     Dosage: UNK
     Route: 042
     Dates: start: 20100901, end: 20100901
  2. PHENERGAN [Suspect]
     Indication: PREMEDICATION
     Dosage: UNK
     Route: 065
     Dates: start: 20100901, end: 20100901

REACTIONS (5)
  - ADRENAL INSUFFICIENCY [None]
  - ASTHENIA [None]
  - MALAISE [None]
  - RESPIRATORY ARREST [None]
  - SEPTIC SHOCK [None]
